FAERS Safety Report 22140589 (Version 1)
Quarter: 2023Q1

REPORT INFORMATION
  Report Type: Other
  Country: CN (occurrence: CN)
  Receive Date: 20230327
  Receipt Date: 20230327
  Transmission Date: 20230418
  Serious: Yes (Hospitalization)
  Sender: FDA-Public Use
  Company Number: CN-GE HEALTHCARE-2023CSU001962

PATIENT
  Age: 62 Year
  Sex: Female
  Weight: 66 kg

DRUGS (3)
  1. OMNIPAQUE [Suspect]
     Active Substance: IOHEXOL
     Indication: Skin test
     Dosage: UNK UNK, SINGLE
     Route: 023
     Dates: start: 20230306, end: 20230306
  2. OMNIPAQUE [Suspect]
     Active Substance: IOHEXOL
     Indication: Diagnostic procedure
     Dosage: 30 GM, SINGLE
     Route: 013
     Dates: start: 20230306, end: 20230306
  3. OMNIPAQUE [Suspect]
     Active Substance: IOHEXOL
     Indication: Product used for unknown indication

REACTIONS (4)
  - Hemiplegia [Recovering/Resolving]
  - Aphasia [Recovering/Resolving]
  - Epilepsy [Unknown]
  - Off label use [Recovered/Resolved]

NARRATIVE: CASE EVENT DATE: 20230306
